FAERS Safety Report 5603907-2 (Version None)
Quarter: 2008Q1

REPORT INFORMATION
  Report Type: 
  Country: None (occurrence: None)
  Receive Date: 20080123
  Receipt Date: 20080123
  Transmission Date: 20080703
  Serious: Yes (Other)
  Sender: FDA-Public Use
  Company Number: None

PATIENT
  Age: 48 Year
  Sex: Female
  Weight: 60.0562 kg

DRUGS (4)
  1. BONIVA [Suspect]
     Indication: OSTEOPENIA
     Dosage: 150MG ONCE MONTHLY PO
     Route: 048
     Dates: start: 20070919, end: 20071119
  2. FEMARA [Concomitant]
  3. AMBIEN [Concomitant]
  4. CALCIUM SUPPLEMENT [Concomitant]

REACTIONS (2)
  - BACK PAIN [None]
  - DISCOMFORT [None]
